FAERS Safety Report 5592908-9 (Version None)
Quarter: 2008Q1

REPORT INFORMATION
  Report Type: 
  Country: None (occurrence: None)
  Receive Date: 20080114
  Receipt Date: 20080114
  Transmission Date: 20080703
  Serious: Yes (Life-Threatening, Hospitalization)
  Sender: FDA-Public Use
  Company Number: None

PATIENT
  Age: 60 Year
  Sex: Male
  Weight: 86.1834 kg

DRUGS (1)
  1. CHANTIX [Suspect]
     Indication: SMOKING CESSATION THERAPY
     Dosage: 1 PILL  2 TIMES A DAY PO
     Route: 048
     Dates: start: 20070816, end: 20071119

REACTIONS (5)
  - DEPRESSION [None]
  - GAMBLING [None]
  - MOOD SWINGS [None]
  - MYOCARDIAL INFARCTION [None]
  - SUICIDAL IDEATION [None]
